FAERS Safety Report 15943192 (Version 3)
Quarter: 2019Q4

REPORT INFORMATION
  Report Type: Spontaneous
  Country: US (occurrence: US)
  Receive Date: 20190210
  Receipt Date: 20191022
  Transmission Date: 20200122
  Serious: Yes (Other)
  Sender: FDA-Public Use
  Company Number: US-ASTRAZENECA-2018SF25880

PATIENT
  Sex: Male
  Weight: 111.1 kg

DRUGS (44)
  1. ECONAZOLE. [Concomitant]
     Active Substance: ECONAZOLE NITRATE
  2. SPECTAZOLE [Concomitant]
     Active Substance: ECONAZOLE NITRATE
  3. PREDNISONE. [Concomitant]
     Active Substance: PREDNISONE
  4. NEXIUM 24HR [Suspect]
     Active Substance: ESOMEPRAZOLE MAGNESIUM
     Route: 048
  5. PRILOSEC OTC [Suspect]
     Active Substance: OMEPRAZOLE MAGNESIUM
     Route: 048
  6. METFORMIN [Concomitant]
     Active Substance: METFORMIN HYDROCHLORIDE
  7. HYDRALAZINE [Concomitant]
     Active Substance: HYDRALAZINE HYDROCHLORIDE
  8. PANTOPRAZOLE SODIUM. [Concomitant]
     Active Substance: PANTOPRAZOLE SODIUM
  9. CLINDAMAX [Concomitant]
     Active Substance: CLINDAMYCIN PHOSPHATE
  10. NEXIUM [Suspect]
     Active Substance: ESOMEPRAZOLE MAGNESIUM
     Indication: DYSPEPSIA
     Route: 048
     Dates: start: 20041101
  11. NOVOLOG [Concomitant]
     Active Substance: INSULIN ASPART
  12. PLAVIX [Concomitant]
     Active Substance: CLOPIDOGREL BISULFATE
  13. LANTUS [Concomitant]
     Active Substance: INSULIN GLARGINE
  14. PRAVASTATIN. [Concomitant]
     Active Substance: PRAVASTATIN
  15. NASONEX [Concomitant]
     Active Substance: MOMETASONE FUROATE
  16. VYTORIN [Concomitant]
     Active Substance: EZETIMIBE\SIMVASTATIN
  17. TERBINAFINE. [Concomitant]
     Active Substance: TERBINAFINE
  18. PROTONIX [Suspect]
     Active Substance: PANTOPRAZOLE SODIUM
     Indication: DYSPEPSIA
     Route: 065
     Dates: start: 2016
  19. METOPROLOL. [Concomitant]
     Active Substance: METOPROLOL
  20. AMLODIPINE BESYLATE. [Concomitant]
     Active Substance: AMLODIPINE BESYLATE
  21. LEVOFLOXACIN. [Concomitant]
     Active Substance: LEVOFLOXACIN
  22. CLOPIDOGREL [Concomitant]
     Active Substance: CLOPIDOGREL BISULFATE
  23. KETOCONAZOLE. [Concomitant]
     Active Substance: KETOCONAZOLE
  24. NEXIUM [Suspect]
     Active Substance: ESOMEPRAZOLE MAGNESIUM
     Indication: DYSPEPSIA
     Route: 048
     Dates: start: 1998
  25. PRILOSEC [Suspect]
     Active Substance: OMEPRAZOLE MAGNESIUM
     Indication: GASTROOESOPHAGEAL REFLUX DISEASE
     Route: 048
     Dates: start: 2015
  26. PROTONIX [Suspect]
     Active Substance: PANTOPRAZOLE SODIUM
     Indication: DYSPEPSIA
     Dosage: GENERIC
     Route: 065
  27. NITROSTAT [Concomitant]
     Active Substance: NITROGLYCERIN
  28. ENALAPRIL [Concomitant]
     Active Substance: ENALAPRIL
  29. GLIMEPIRIDE. [Concomitant]
     Active Substance: GLIMEPIRIDE
  30. CICLOPIROX. [Concomitant]
     Active Substance: CICLOPIROX
  31. DILTIAZEM. [Concomitant]
     Active Substance: DILTIAZEM
  32. NEXIUM [Suspect]
     Active Substance: ESOMEPRAZOLE MAGNESIUM
     Indication: DYSPEPSIA
     Route: 048
     Dates: start: 1995, end: 2016
  33. NEXIUM [Suspect]
     Active Substance: ESOMEPRAZOLE MAGNESIUM
     Indication: DYSPEPSIA
     Dosage: GENERIC
     Route: 065
  34. PREVACID 24 HR [Suspect]
     Active Substance: LANSOPRAZOLE
     Route: 065
  35. JANUVIA [Concomitant]
     Active Substance: SITAGLIPTIN PHOSPHATE
  36. GLIPIZIDE. [Concomitant]
     Active Substance: GLIPIZIDE
  37. ZOCOR [Concomitant]
     Active Substance: SIMVASTATIN
  38. TOPROL XL [Concomitant]
     Active Substance: METOPROLOL SUCCINATE
  39. PREVACID [Suspect]
     Active Substance: LANSOPRAZOLE
     Route: 065
  40. LIPITOR [Concomitant]
     Active Substance: ATORVASTATIN CALCIUM
  41. HYDROCHLOROTHIAZIDE. [Concomitant]
     Active Substance: HYDROCHLOROTHIAZIDE
  42. AZITHROMYCIN ANHYDROUS. [Concomitant]
     Active Substance: AZITHROMYCIN ANHYDROUS
  43. ZANTAC [Concomitant]
     Active Substance: RANITIDINE HYDROCHLORIDE
  44. PEPCID [Concomitant]
     Active Substance: FAMOTIDINE

REACTIONS (3)
  - Nephropathy [Unknown]
  - Oesophageal disorder [Not Recovered/Not Resolved]
  - Chronic kidney disease [Not Recovered/Not Resolved]
